FAERS Safety Report 5227718-5 (Version None)
Quarter: 2007Q1

REPORT INFORMATION
  Report Type: 
  Country: None (occurrence: None)
  Receive Date: 20070202
  Receipt Date: 20070118
  Transmission Date: 20070707
  Serious: Yes (Other)
  Sender: FDA-Public Use
  Company Number: US-AMGEN-US207585

PATIENT
  Sex: Male

DRUGS (1)
  1. EPOGEN [Suspect]
     Indication: DIALYSIS
     Dates: start: 20040301

REACTIONS (4)
  - COMPLICATIONS OF TRANSPLANTED KIDNEY [None]
  - LYMPHOPROLIFERATIVE DISORDER [None]
  - POLYOMAVIRUS-ASSOCIATED NEPHROPATHY [None]
  - RENAL TRANSPLANT [None]
